FAERS Safety Report 14375992 (Version 2)
Quarter: 2018Q1

REPORT INFORMATION
  Report Type: Spontaneous
  Country: US (occurrence: US)
  Receive Date: 20180111
  Receipt Date: 20180112
  Transmission Date: 20180509
  Serious: No
  Sender: FDA-Public Use
  Company Number: US-PFIZER INC-2018010891

PATIENT
  Age: 9 Year
  Sex: Female
  Weight: 48.53 kg

DRUGS (1)
  1. QUILLIVANT XR [Suspect]
     Active Substance: METHYLPHENIDATE HYDROCHLORIDE
     Indication: ATTENTION DEFICIT/HYPERACTIVITY DISORDER
     Dosage: 12 ML, ONE TIME A DAY IN THE MORNING
     Route: 048
     Dates: start: 2014, end: 2017

REACTIONS (1)
  - Disturbance in social behaviour [Not Recovered/Not Resolved]
